FAERS Safety Report 19020463 (Version 2)
Quarter: 2021Q1

REPORT INFORMATION
  Report Type: Spontaneous
  Country: IN (occurrence: IN)
  Receive Date: 20210317
  Receipt Date: 20210324
  Transmission Date: 20210420
  Serious: Yes (Death, Hospitalization)
  Sender: FDA-Public Use
  Company Number: IN-MYLANLABS-2021M1015964

PATIENT
  Age: 16 Year
  Sex: Male

DRUGS (6)
  1. METHYLPREDNISOLONE. [Suspect]
     Active Substance: METHYLPREDNISOLONE
     Indication: COVID-19
     Dosage: 4 MILLIGRAM
     Route: 042
  2. AZTREONAM. [Suspect]
     Active Substance: AZTREONAM
     Indication: COVID-19
     Dosage: 500 MILLIGRAM
     Route: 042
  3. MYCOPHENOLATE MOFETIL. [Suspect]
     Active Substance: MYCOPHENOLATE MOFETIL
     Indication: IMMUNOSUPPRESSANT DRUG THERAPY
     Dosage: 360 MILLIGRAM, BID TWO TABLETS
     Route: 065
  4. MEROPENEM. [Suspect]
     Active Substance: MEROPENEM
     Indication: COVID-19
     Dosage: 1 GRAM
     Route: 042
  5. VASOPRESSIN. [Concomitant]
     Active Substance: VASOPRESSIN
     Indication: HYPOTENSION
     Route: 065
  6. TACROLIMUS. [Suspect]
     Active Substance: TACROLIMUS
     Indication: IMMUNOSUPPRESSANT DRUG THERAPY
     Dosage: 2.5 MILLIGRAM, BID
     Route: 065

REACTIONS (6)
  - Off label use [Unknown]
  - Pneumothorax [Fatal]
  - Pleural effusion [Fatal]
  - COVID-19 [Fatal]
  - Epistaxis [Fatal]
  - Supraventricular tachycardia [Fatal]
